FAERS Safety Report 25092481 (Version 3)
Quarter: 2025Q2

REPORT INFORMATION
  Report Type: Spontaneous
  Country: US (occurrence: US)
  Receive Date: 20250319
  Receipt Date: 20250425
  Transmission Date: 20250716
  Serious: Yes (Other)
  Sender: REGENERON
  Company Number: US-REGENERON PHARMACEUTICALS, INC.-2025-026661

PATIENT
  Sex: Male

DRUGS (8)
  1. EYLEA HD [Suspect]
     Active Substance: AFLIBERCEPT
     Indication: Diabetic retinal oedema
     Dates: start: 20240223, end: 20240223
  2. EYLEA HD [Suspect]
     Active Substance: AFLIBERCEPT
     Dates: start: 20240418, end: 20240418
  3. EYLEA HD [Suspect]
     Active Substance: AFLIBERCEPT
     Dates: start: 20240530, end: 20240530
  4. EYLEA HD [Suspect]
     Active Substance: AFLIBERCEPT
     Dates: start: 20240816, end: 20240816
  5. EYLEA HD [Suspect]
     Active Substance: AFLIBERCEPT
     Dates: start: 20240919, end: 20240919
  6. EYLEA HD [Suspect]
     Active Substance: AFLIBERCEPT
     Dates: start: 20241031, end: 20241031
  7. EYLEA HD [Suspect]
     Active Substance: AFLIBERCEPT
     Dates: start: 20241213, end: 20241213
  8. EYLEA HD [Suspect]
     Active Substance: AFLIBERCEPT
     Dates: start: 20250130, end: 20250130

REACTIONS (3)
  - Blindness transient [Recovered/Resolved]
  - Bacterial endophthalmitis [Recovered/Resolved]
  - Visual acuity reduced transiently [Recovered/Resolved]

NARRATIVE: CASE EVENT DATE: 20250203
